FAERS Safety Report 8442734-8 (Version None)
Quarter: 2012Q2

REPORT INFORMATION
  Report Type: 
  Country: None (occurrence: None)
  Receive Date: 20120615
  Receipt Date: 20120604
  Transmission Date: 20120825
  Serious: Yes (Other)
  Sender: FDA-Public Use
  Company Number: US-VALEANT-2012VX002700

PATIENT
  Sex: Female

DRUGS (3)
  1. CERAVE [Suspect]
     Route: 061
  2. CERAVE [Suspect]
     Route: 061
  3. CERAVE FACIAL MOISTURIZING LOTION AM [Suspect]
     Route: 061

REACTIONS (1)
  - BREAST CANCER [None]
